FAERS Safety Report 12781042 (Version 2)
Quarter: 2016Q4

REPORT INFORMATION
  Report Type: Spontaneous
  Country: JP (occurrence: JP)
  Receive Date: 20160926
  Receipt Date: 20161014
  Transmission Date: 20170207
  Serious: Yes (Hospitalization)
  Sender: FDA-Public Use
  Company Number: JP-009507513-1609JPN012030

PATIENT
  Age: 81 Year
  Sex: Male

DRUGS (9)
  1. WARFARIN POTASSIUM [Concomitant]
     Active Substance: WARFARIN POTASSIUM
     Indication: PROPHYLAXIS
     Dosage: 2750 MICROGRAM, ONCE A DAY
     Route: 048
     Dates: start: 20130607
  2. OPALMON [Concomitant]
     Active Substance: LIMAPROST
     Indication: LUMBAR SPINAL STENOSIS
     Dosage: 1 DF, TID
     Route: 048
     Dates: start: 20091107
  3. DIART [Concomitant]
     Active Substance: AZOSEMIDE
     Indication: CARDIAC FAILURE
     Dosage: 60 MG, QD
     Route: 048
     Dates: start: 20141107
  4. JANUVIA [Suspect]
     Active Substance: SITAGLIPTIN PHOSPHATE
     Indication: TYPE 2 DIABETES MELLITUS
     Dosage: 50 MG, QD
     Route: 048
     Dates: start: 20150909
  5. LENDORMIN [Concomitant]
     Active Substance: BROTIZOLAM
     Indication: INSOMNIA
     Dosage: 250 MICROGRAM, QD
     Route: 048
  6. FEBURIC [Concomitant]
     Active Substance: FEBUXOSTAT
     Indication: HYPERURICAEMIA
     Dosage: 20 MG, QD
     Route: 048
     Dates: start: 20120912
  7. SUREPOST [Concomitant]
     Active Substance: REPAGLINIDE
     Indication: TYPE 2 DIABETES MELLITUS
     Dosage: 250 MG, TID
     Route: 048
     Dates: start: 20120731
  8. REFLEX [Concomitant]
     Active Substance: MIRTAZAPINE
     Indication: DEPRESSION
     Dosage: 15 MG, BID
     Route: 048
     Dates: start: 20121015
  9. ASPENON [Concomitant]
     Active Substance: APRINDINE HYDROCHLORIDE
     Indication: ATRIAL FIBRILLATION
     Dosage: 10 MG, BID
     Route: 048
     Dates: start: 20130605

REACTIONS (2)
  - Spinal osteoarthritis [Recovering/Resolving]
  - Bronchitis [Recovered/Resolved]

NARRATIVE: CASE EVENT DATE: 20160211
